FAERS Safety Report 5145887-2 (Version None)
Quarter: 2006Q4

REPORT INFORMATION
  Report Type: 
  Country: None (occurrence: None)
  Receive Date: 20061108
  Receipt Date: 20061018
  Transmission Date: 20070319
  Serious: Yes (Hospitalization)
  Sender: FDA-Public Use
  Company Number: US-AMGEN-US197337

PATIENT
  Sex: Female

DRUGS (14)
  1. PANITUMUMAB [Suspect]
     Indication: COLORECTAL CANCER
     Route: 042
     Dates: start: 20060920
  2. IRINOTECAN HCL [Suspect]
     Route: 042
  3. FLUOROURACIL [Suspect]
     Route: 042
  4. AVASTIN [Concomitant]
     Route: 042
  5. LEUCOVORIN CALCIUM [Concomitant]
     Route: 042
  6. SYNTHROID [Concomitant]
     Route: 065
  7. PREVACID [Concomitant]
     Route: 065
  8. REGLAN [Concomitant]
     Route: 065
  9. PHENERGAN [Concomitant]
     Route: 065
  10. IMODIUM [Concomitant]
     Route: 065
  11. LASIX [Concomitant]
     Route: 065
  12. POTASSIUM ACETATE [Concomitant]
     Route: 065
  13. VITAMINS [Concomitant]
     Route: 065
  14. ASPIRIN [Concomitant]
     Route: 065

REACTIONS (4)
  - ABDOMINAL PAIN [None]
  - DEHYDRATION [None]
  - DIARRHOEA [None]
  - MALNUTRITION [None]
